FAERS Safety Report 25935457 (Version 2)
Quarter: 2025Q4

REPORT INFORMATION
  Report Type: Spontaneous
  Country: US (occurrence: US)
  Receive Date: 20251017
  Receipt Date: 20251230
  Transmission Date: 20260118
  Serious: Yes (Other)
  Sender: NOVO NORDISK
  Company Number: US-NOVOPROD-1539243

PATIENT
  Sex: Male
  Weight: 106.58 kg

DRUGS (1)
  1. NOVOLOG [Suspect]
     Active Substance: INSULIN ASPART
     Indication: Type 2 diabetes mellitus
     Dosage: 114 IU, QD (40 IU MORNING, 34 IU AFTERNOON, 40 IU  NIGHT)
     Route: 058

REACTIONS (3)
  - Limb injury [Not Recovered/Not Resolved]
  - Fall [Not Recovered/Not Resolved]
  - Corrective lens user [Not Recovered/Not Resolved]
